FAERS Safety Report 7898642-4 (Version None)
Quarter: 2011Q4

REPORT INFORMATION
  Report Type: 
  Country: None (occurrence: None)
  Receive Date: 20111107
  Receipt Date: 20111107
  Transmission Date: 20120403
  Serious: Yes (Other)
  Sender: FDA-Public Use
  Company Number: None

PATIENT
  Sex: Female
  Weight: 52.163 kg

DRUGS (1)
  1. DEPAKOTE [Suspect]
     Indication: EPILEPSY
     Dosage: 1000 MG
     Route: 048
     Dates: start: 20020101, end: 20100801

REACTIONS (9)
  - ALOPECIA [None]
  - SUICIDE ATTEMPT [None]
  - CARDIAC ARREST [None]
  - HAEMATEMESIS [None]
  - COMA [None]
  - TREMOR [None]
  - ANXIETY [None]
  - GINGIVAL BLEEDING [None]
  - BODY TEMPERATURE INCREASED [None]
